FAERS Safety Report 8110539-3 (Version None)
Quarter: 2012Q1

REPORT INFORMATION
  Report Type: 
  Country: None (occurrence: None)
  Receive Date: 20120203
  Receipt Date: 20120124
  Transmission Date: 20120608
  Serious: Yes (Hospitalization)
  Sender: FDA-Public Use
  Company Number: JP-BRISTOL-MYERS SQUIBB COMPANY-16245797

PATIENT
  Sex: Male

DRUGS (6)
  1. RITODRINE HCL [Concomitant]
     Dates: start: 20100621, end: 20100623
  2. REYATAZ [Suspect]
     Route: 064
     Dates: start: 20091101, end: 20091222
  3. NORVIR [Suspect]
     Route: 064
     Dates: start: 20091101, end: 20091222
  4. KALETRA [Suspect]
     Dosage: INTERRUPTED ON  26JUL10.REST'D ON 10AUG10.2DF=4TABLETS
     Route: 064
     Dates: start: 20091223, end: 20100726
  5. EPZICOM [Suspect]
     Dosage: 1DF=1TABLET
     Route: 064
     Dates: start: 20091101, end: 20110208
  6. RETROVIR [Suspect]
     Dosage: ALSO TAKEN AS CONMED RETOVIR: ORAL,29JUN10-10AUG10.
     Route: 064
     Dates: start: 20100629

REACTIONS (2)
  - ANAEMIA [None]
  - TACHYPNOEA [None]
